FAERS Safety Report 12465070 (Version 1)
Quarter: 2016Q2

REPORT INFORMATION
  Report Type: Spontaneous
  Country: JP (occurrence: JP)
  Receive Date: 20160614
  Receipt Date: 20160614
  Transmission Date: 20160815
  Serious: Yes (Other)
  Sender: FDA-Public Use
  Company Number: PHJP1997JP000972

PATIENT
  Age: 26 Year
  Sex: Female
  Weight: 59.9 kg

DRUGS (16)
  1. CEFAMEZIN//CEFAZOLIN SODIUM [Suspect]
     Active Substance: CEFAZOLIN SODIUM
     Indication: PYREXIA
     Dosage: 4 G, UNK
     Dates: start: 19961007, end: 19961011
  2. RIVOTRIL [Concomitant]
     Active Substance: CLONAZEPAM
     Indication: BIPOLAR I DISORDER
     Dosage: 1 MG, UNK
     Route: 048
     Dates: start: 1994, end: 19971007
  3. LIMAS [Concomitant]
     Active Substance: LITHIUM CARBONATE
     Indication: BIPOLAR I DISORDER
     Dosage: 600 MG, UNK
     Route: 048
     Dates: start: 1994, end: 19971007
  4. MIRADOL//SULPIRIDE [Concomitant]
     Indication: BIPOLAR I DISORDER
     Dosage: 600 MG, UNK
     Route: 048
     Dates: start: 1994, end: 19961007
  5. MIRADOL//SULPIRIDE [Concomitant]
     Indication: DEPRESSION
  6. TEGRETOL [Suspect]
     Active Substance: CARBAMAZEPINE
     Indication: BIPOLAR I DISORDER
     Dosage: 400 MG, UNK
     Route: 048
     Dates: start: 19960909, end: 19961007
  7. TEGRETOL [Suspect]
     Active Substance: CARBAMAZEPINE
     Indication: DEPRESSION
  8. LIMAS [Concomitant]
     Active Substance: LITHIUM CARBONATE
     Indication: MANIA
  9. KEFRAL [Suspect]
     Active Substance: CEFACLOR
     Indication: INFECTION
  10. UNASYN S [Suspect]
     Active Substance: AMPICILLIN SODIUM\SULBACTAM SODIUM
     Indication: INFECTION
  11. LOXONIN [Suspect]
     Active Substance: LOXOPROFEN SODIUM
     Indication: ANTIINFLAMMATORY THERAPY
     Dosage: 60 MG, UNK
     Route: 048
     Dates: start: 19961006, end: 19961007
  12. KEFRAL [Suspect]
     Active Substance: CEFACLOR
     Indication: PYREXIA
     Dosage: 750 MG, UNK
     Route: 048
     Dates: start: 19961006, end: 19961007
  13. FLUMEZIN [Concomitant]
     Indication: BIPOLAR I DISORDER
     Dosage: 1 MG, UNK
     Route: 048
     Dates: end: 19961007
  14. UNASYN S [Suspect]
     Active Substance: AMPICILLIN SODIUM\SULBACTAM SODIUM
     Indication: PYREXIA
     Dosage: 6 G, UNK
     Dates: start: 19961011, end: 19961014
  15. CEFAMEZIN//CEFAZOLIN SODIUM [Suspect]
     Active Substance: CEFAZOLIN SODIUM
     Indication: INFECTION
  16. LOXONIN [Suspect]
     Active Substance: LOXOPROFEN SODIUM
     Indication: ANALGESIC THERAPY

REACTIONS (2)
  - Oedema [Recovered/Resolved]
  - Respiratory failure [Recovered/Resolved]

NARRATIVE: CASE EVENT DATE: 19961014
